FAERS Safety Report 8605277 (Version 3)
Quarter: 2012Q4

REPORT INFORMATION
  Report Type: 
  Country: DK (occurrence: GB)
  Receive Date: 20120608
  Receipt Date: 20121116
  Transmission Date: 20130627
  Serious: Yes (Death)
  Sender: FDA-Public Use
  Company Number: GB-FRI-1000031103

PATIENT
  Age: 49 Year
  Sex: Male

DRUGS (5)
  1. CITALOPRAM [Suspect]
     Indication: DEPRESSED MOOD
     Dosage: 20 mg
     Route: 048
     Dates: start: 20101001, end: 20101018
  2. DULOXETINE [Suspect]
     Indication: AGITATED DEPRESSION
     Dosage: 60 mg
     Route: 048
     Dates: start: 20101019, end: 20101229
  3. DIAZEPAM [Concomitant]
  4. OLANZAPINE [Concomitant]
  5. ZOPICLONE [Concomitant]

REACTIONS (3)
  - Completed suicide [Fatal]
  - Suicidal ideation [Not Recovered/Not Resolved]
  - Agitation [Not Recovered/Not Resolved]
